FAERS Safety Report 24342674 (Version 1)
Quarter: 2024Q3

REPORT INFORMATION
  Report Type: Spontaneous
  Country: CZ (occurrence: CZ)
  Receive Date: 20240920
  Receipt Date: 20240920
  Transmission Date: 20241017
  Serious: Yes (Other)
  Sender: CELLTRION
  Company Number: CZ-CELLTRION INC.-2024CZ000687

PATIENT

DRUGS (5)
  1. ADALIMUMAB [Suspect]
     Active Substance: ADALIMUMAB
     Indication: Rheumatoid arthritis
     Dosage: UNK
     Route: 058
  2. METHOTREXATE SODIUM [Suspect]
     Active Substance: METHOTREXATE SODIUM
     Indication: Rheumatoid arthritis
     Dosage: UNK
  3. METHOTREXATE SODIUM [Suspect]
     Active Substance: METHOTREXATE SODIUM
     Dosage: 10 MG, PER WEEK
     Dates: start: 202106
  4. PREDNISONE [Suspect]
     Active Substance: PREDNISONE
     Indication: Rheumatoid arthritis
     Dosage: TAPERING LOW-DOSE THERAPY
  5. PREDNISONE [Suspect]
     Active Substance: PREDNISONE
     Dosage: 10 MG FOR 2 WEEKS, THEN 5 MG FOR 2 WEEKS, THEN DISCONTINUE

REACTIONS (2)
  - Rheumatoid arthritis [Unknown]
  - Loss of therapeutic response [Unknown]
